FAERS Safety Report 7162202-3 (Version None)
Quarter: 2010Q4

REPORT INFORMATION
  Report Type: 
  Country: None (occurrence: None)
  Receive Date: 20101215
  Receipt Date: 20090911
  Transmission Date: 20110411
  Serious: Yes (Death)
  Sender: FDA-Public Use
  Company Number: FR-PFIZER INC-2009267326

PATIENT
  Age: 80 Year

DRUGS (12)
  1. LYRICA [Suspect]
     Indication: ANXIETY
     Dosage: 25 MG, 2X/DAY
     Route: 048
     Dates: start: 20090624, end: 20090626
  2. VERATRAN [Suspect]
     Indication: ANXIETY
     Dosage: 5 MG, 1X/DAY
     Route: 048
     Dates: start: 20090624, end: 20090626
  3. CYMBALTA [Suspect]
     Indication: DEPRESSION
     Dosage: 30 MG, 1X/DAY
     Route: 048
     Dates: start: 20090624, end: 20090626
  4. TAHOR [Concomitant]
  5. ATACAND [Concomitant]
  6. BISOPROLOL FUMARATE [Concomitant]
  7. SITAGLIPTIN [Concomitant]
  8. LASIX [Concomitant]
  9. METFORMIN [Concomitant]
  10. SERMION [Concomitant]
  11. SERESTA [Concomitant]
  12. ALLOPURINOL [Concomitant]

REACTIONS (2)
  - ACUTE HEPATIC FAILURE [None]
  - CYTOLYTIC HEPATITIS [None]
